FAERS Safety Report 18979050 (Version 3)
Quarter: 2021Q2

REPORT INFORMATION
  Report Type: Spontaneous
  Country: GB (occurrence: GB)
  Receive Date: 20210308
  Receipt Date: 20210421
  Transmission Date: 20210717
  Serious: Yes (Hospitalization, Other)
  Sender: FDA-Public Use
  Company Number: GB-SUN PHARMACEUTICAL INDUSTRIES LTD-2021RR-284825

PATIENT
  Age: 37 Year
  Sex: Female

DRUGS (8)
  1. LETROZOLE. [Suspect]
     Active Substance: LETROZOLE
     Indication: BREAST CANCER
     Dosage: UNK
     Route: 065
     Dates: start: 201710
  2. IBRANCE [Suspect]
     Active Substance: PALBOCICLIB
     Indication: BREAST CANCER
     Dosage: 100 MILLIGRAM, DAILY, 100 MG, 1X/DAY
     Route: 065
  3. PALBOCICLIB [Suspect]
     Active Substance: PALBOCICLIB
     Indication: BREAST CANCER
  4. LETROZOLE. [Suspect]
     Active Substance: LETROZOLE
     Indication: METASTASES TO LIVER
     Dosage: 2.5 MG, QD
     Route: 065
     Dates: start: 201708
  5. IBRANCE [Suspect]
     Active Substance: PALBOCICLIB
     Indication: METASTASES TO LIVER
     Dosage: 125 MILLIGRAM, DAILY, 125 MG, 1X/DAY
     Route: 065
     Dates: start: 201708
  6. PALBOCICLIB [Suspect]
     Active Substance: PALBOCICLIB
     Indication: METASTASES TO LIVER
     Dosage: UNK
     Route: 048
     Dates: start: 201710
  7. ZOLADEX [Suspect]
     Active Substance: GOSERELIN ACETATE
     Indication: METASTASES TO LIVER
     Dosage: UNK
     Route: 065
     Dates: start: 201708
  8. ZOLADEX [Suspect]
     Active Substance: GOSERELIN ACETATE
     Indication: BREAST CANCER
     Dosage: UNK
     Route: 048
     Dates: start: 201710

REACTIONS (6)
  - C-reactive protein increased [Unknown]
  - Cough [Recovered/Resolved]
  - SARS-CoV-2 test positive [Recovered/Resolved]
  - Neoplasm progression [Unknown]
  - Febrile neutropenia [Recovered/Resolved]
  - Oropharyngeal pain [Recovered/Resolved]

NARRATIVE: CASE EVENT DATE: 201712
